FAERS Safety Report 20560857 (Version 1)
Quarter: 2022Q1

REPORT INFORMATION
  Report Type: Spontaneous
  Country: CN (occurrence: CN)
  Receive Date: 20220307
  Receipt Date: 20220307
  Transmission Date: 20220423
  Serious: Yes (Death)
  Sender: FDA-Public Use
  Company Number: CN-PFIZER INC-202200318326

PATIENT
  Age: 57 Year

DRUGS (2)
  1. SOLU-MEDROL [Suspect]
     Active Substance: METHYLPREDNISOLONE SODIUM SUCCINATE
     Indication: Sudden hearing loss
     Dosage: 120 MG, DAILY
     Route: 042
     Dates: start: 20190708, end: 20190713
  2. SOLU-MEDROL [Suspect]
     Active Substance: METHYLPREDNISOLONE SODIUM SUCCINATE
     Dosage: 80 MG, DAILY
     Route: 042
     Dates: start: 20190713, end: 20190718

REACTIONS (4)
  - Sepsis [Fatal]
  - Infection [Unknown]
  - Haematuria [Unknown]
  - Off label use [Unknown]

NARRATIVE: CASE EVENT DATE: 20190701
